FAERS Safety Report 5209515-X (Version None)
Quarter: 2007Q1

REPORT INFORMATION
  Report Type: 
  Country: None (occurrence: None)
  Receive Date: 20070116
  Receipt Date: 20070105
  Transmission Date: 20070707
  Serious: Yes (Other)
  Sender: FDA-Public Use
  Company Number: BR-PFIZER INC-2007002523

PATIENT
  Sex: Female

DRUGS (6)
  1. ALDACTONE [Suspect]
     Indication: CARDIOMYOPATHY
     Route: 048
  2. SPIRONOLACTONE [Suspect]
  3. DESLORATADINE [Concomitant]
     Route: 048
  4. CARVEDILOL [Concomitant]
     Route: 048
  5. MONOCORDIL [Concomitant]
     Route: 048
  6. ISORDIL [Concomitant]
     Route: 060

REACTIONS (3)
  - CHEST DISCOMFORT [None]
  - GENERALISED OEDEMA [None]
  - MALAISE [None]
